FAERS Safety Report 7285882-0 (Version None)
Quarter: 2011Q1

REPORT INFORMATION
  Report Type: 
  Country: None (occurrence: None)
  Receive Date: 20110210
  Receipt Date: 20110202
  Transmission Date: 20110831
  Serious: Yes (Other)
  Sender: FDA-Public Use
  Company Number: BE-ASTRAZENECA-2011SE06685

PATIENT
  Age: 53 Year
  Sex: Male

DRUGS (6)
  1. RAMIPRIL [Concomitant]
  2. ASAFLOW [Concomitant]
     Dosage: LOW DOSE
  3. FUROSEMIDE [Concomitant]
  4. CRESTOR [Suspect]
     Route: 048
  5. EFFEXOR [Concomitant]
  6. XANAX [Concomitant]

REACTIONS (1)
  - TENDON RUPTURE [None]
